FAERS Safety Report 23706332 (Version 1)
Quarter: 2024Q2

REPORT INFORMATION
  Report Type: Spontaneous
  Country: US (occurrence: None)
  Receive Date: 20240403
  Receipt Date: 20240403
  Transmission Date: 20240715
  Serious: Yes (Hospitalization)
  Sender: FDA-Public Use
  Company Number: None

PATIENT
  Age: 39 Year
  Sex: Male
  Weight: 72 kg

DRUGS (3)
  1. LOSARTAN [Suspect]
     Active Substance: LOSARTAN
     Dosage: OTHER QUANTITY : 1 TABLET(S);?
     Route: 048
     Dates: start: 20240315, end: 20240325
  2. Men^s daily multivitamin [Concomitant]
  3. Advil/Tylenol [Concomitant]

REACTIONS (7)
  - General physical health deterioration [None]
  - Asthenia [None]
  - Headache [None]
  - Brain fog [None]
  - Tremor [None]
  - Mental impairment [None]
  - Emotional disorder [None]

NARRATIVE: CASE EVENT DATE: 20240326
